FAERS Safety Report 9886536 (Version 1)
Quarter: 2014Q1

REPORT INFORMATION
  Report Type: Spontaneous
  Country: JP (occurrence: JP)
  Receive Date: 20140210
  Receipt Date: 20140210
  Transmission Date: 20141002
  Serious: Yes (Other)
  Sender: FDA-Public Use
  Company Number: JP-PFIZER INC-2014037492

PATIENT
  Sex: Male

DRUGS (1)
  1. LYRICA [Suspect]
     Indication: SCIATICA
     Dosage: 25 MG, 3X/DAY
     Route: 048
     Dates: start: 20131120

REACTIONS (2)
  - Visual brightness [Unknown]
  - Visual impairment [Unknown]
